FAERS Safety Report 8217001 (Version 4)
Quarter: 2012Q4

REPORT INFORMATION
  Report Type: 
  Country: US (occurrence: US)
  Receive Date: 20111101
  Receipt Date: 20121025
  Transmission Date: 20130627
  Serious: Yes (Other)
  Sender: FDA-Public Use
  Company Number: US-US-EMD SERONO, INC.-7091782

PATIENT
  Sex: Female

DRUGS (9)
  1. REBIF [Suspect]
     Indication: MULTIPLE SCLEROSIS
     Route: 058
     Dates: start: 20090901
  2. BACLOFEN [Concomitant]
     Indication: MUSCLE SPASMS
  3. LEXAPRO [Concomitant]
     Indication: DEPRESSION
  4. LEXAPRO [Concomitant]
     Indication: MOOD DISORDER DUE TO A GENERAL MEDICAL CONDITION
  5. MIRAPEX [Concomitant]
     Indication: RESTLESS LEGS SYNDROME
  6. INSULIN PUMP [Concomitant]
     Indication: TYPE 1 DIABETES MELLITUS
  7. LISINOPRIL [Concomitant]
     Indication: HYPERTENSION
  8. SIMVASTATIN [Concomitant]
     Indication: HYPERCHOLESTEROLAEMIA
  9. PROZAC [Concomitant]
     Indication: AFFECTIVE DISORDER

REACTIONS (2)
  - Breast cancer stage II [Not Recovered/Not Resolved]
  - Full blood count abnormal [Unknown]
